FAERS Safety Report 18750112 (Version 1)
Quarter: 2021Q1

REPORT INFORMATION
  Report Type: Spontaneous
  Country: US (occurrence: US)
  Receive Date: 20210118
  Receipt Date: 20210118
  Transmission Date: 20210419
  Serious: No
  Sender: FDA-Public Use
  Company Number: US-HORIZON-2021HZN00354

PATIENT
  Age: 25 Year
  Sex: Female

DRUGS (4)
  1. TEPEZZA [Suspect]
     Active Substance: TEPROTUMUMAB-TRBW
     Indication: TOXIC GOITRE
     Dosage: DILUTE TEPEZZA VIALS WITH 10ML STERILE WATER. 41ML=1950MG. WITHDRAW 41ML SALINE FROM 250ML BAG, A...
  2. SODIUM CHLORIDE 0.9% [Concomitant]
     Active Substance: SODIUM CHLORIDE
  3. STERILE WATER FOR INJECTION [Concomitant]
     Active Substance: WATER
  4. NORMAL SALINE [Concomitant]
     Active Substance: SODIUM CHLORIDE

REACTIONS (1)
  - Eye disorder [Unknown]
